FAERS Safety Report 10486986 (Version 1)
Quarter: 2014Q4

REPORT INFORMATION
  Report Type: Spontaneous
  Country: TR (occurrence: TR)
  Receive Date: 20141001
  Receipt Date: 20141001
  Transmission Date: 20150528
  Serious: Yes (Hospitalization)
  Sender: FDA-Public Use
  Company Number: TR-ABBVIE-14P-161-1290098-00

PATIENT

DRUGS (1)
  1. TARKA FORTE [Suspect]
     Active Substance: TRANDOLAPRIL\VERAPAMIL HYDROCHLORIDE
     Indication: HYPERTENSION
     Dosage: 2MG/180MG; ONCE A DAY
     Route: 048

REACTIONS (1)
  - Atrioventricular block [Recovered/Resolved]
